FAERS Safety Report 21196182 (Version 8)
Quarter: 2023Q1

REPORT INFORMATION
  Report Type: Spontaneous
  Country: US (occurrence: US)
  Receive Date: 20220810
  Receipt Date: 20230106
  Transmission Date: 20230417
  Serious: No
  Sender: FDA-Public Use
  Company Number: US-PFIZER INC-PV202200040301

PATIENT
  Age: 70 Year
  Sex: Female

DRUGS (1)
  1. IBRANCE [Suspect]
     Active Substance: PALBOCICLIB
     Dosage: 125 MG

REACTIONS (9)
  - Headache [Unknown]
  - Diarrhoea [Unknown]
  - Rhinorrhoea [Unknown]
  - Nausea [Recovered/Resolved]
  - Full blood count abnormal [Unknown]
  - Product dose omission issue [Unknown]
  - Sinus disorder [Unknown]
  - Cough [Unknown]
  - Infection [Unknown]

NARRATIVE: CASE EVENT DATE: 20220101
